FAERS Safety Report 17584870 (Version 1)
Quarter: 2020Q1

REPORT INFORMATION
  Report Type: Spontaneous
  Country: US (occurrence: US)
  Receive Date: 20200325
  Receipt Date: 20200325
  Transmission Date: 20200409
  Serious: Yes (Other)
  Sender: FDA-Public Use
  Company Number: None

PATIENT
  Age: 57 Year
  Sex: Female
  Weight: 97.2 kg

DRUGS (19)
  1. VITAMIN C [Concomitant]
     Active Substance: ASCORBIC ACID
  2. ACETAMINOPHEN. [Concomitant]
     Active Substance: ACETAMINOPHEN
  3. SPIRIVA [Concomitant]
     Active Substance: TIOTROPIUM BROMIDE MONOHYDRATE
  4. GUANFACINE. [Concomitant]
     Active Substance: GUANFACINE
  5. LISINOPRIL. [Concomitant]
     Active Substance: LISINOPRIL
  6. CHLOR-TBLETS [Concomitant]
  7. AMITIZA [Suspect]
     Active Substance: LUBIPROSTONE
     Indication: CONSTIPATION
     Dosage: ?          QUANTITY:30 CAPSULE(S);?
     Route: 048
     Dates: start: 20200218, end: 20200219
  8. MULTIVITAMIN [Concomitant]
     Active Substance: VITAMINS
  9. MELATONIN [Concomitant]
     Active Substance: MELATONIN
  10. MELOXICAM. [Concomitant]
     Active Substance: MELOXICAM
  11. HUMALOG [Concomitant]
     Active Substance: INSULIN LISPRO
  12. PROAIRRESPICLICK [Concomitant]
  13. ESCITALOPRAM [Concomitant]
     Active Substance: ESCITALOPRAM OXALATE
  14. NIACIN. [Concomitant]
     Active Substance: NIACIN
  15. GABAPENTIN. [Concomitant]
     Active Substance: GABAPENTIN
  16. LANTUS [Concomitant]
     Active Substance: INSULIN GLARGINE
  17. OMEPRAZOLE. [Concomitant]
     Active Substance: OMEPRAZOLE
  18. HYDROXYZINE [Concomitant]
     Active Substance: HYDROXYZINE HYDROCHLORIDE
  19. BACLOFEN. [Concomitant]
     Active Substance: BACLOFEN

REACTIONS (6)
  - Product use complaint [None]
  - Abdominal pain upper [None]
  - Headache [None]
  - Hypotension [None]
  - Blood glucose increased [None]
  - Presyncope [None]

NARRATIVE: CASE EVENT DATE: 20200218
